FAERS Safety Report 6245685-2 (Version None)
Quarter: 2009Q2

REPORT INFORMATION
  Report Type: 
  Country: None (occurrence: None)
  Receive Date: 20090625
  Receipt Date: 20090611
  Transmission Date: 20091009
  Serious: Yes (Other)
  Sender: FDA-Public Use
  Company Number: AU-JNJFOC-20090105486

PATIENT
  Sex: Female

DRUGS (2)
  1. RISPERDAL CONSTA [Suspect]
     Indication: SCHIZOPHRENIA
     Route: 030
  2. SEROQUEL [Suspect]
     Indication: SCHIZOPHRENIA
     Route: 065

REACTIONS (6)
  - INCORRECT DOSE ADMINISTERED [None]
  - INJECTION SITE EXTRAVASATION [None]
  - MEDICATION ERROR [None]
  - MENTAL IMPAIRMENT [None]
  - PRODUCT QUALITY ISSUE [None]
  - SELF-MEDICATION [None]
